FAERS Safety Report 10685312 (Version 1)
Quarter: 2014Q4

REPORT INFORMATION
  Report Type: Spontaneous
  Country: TC (occurrence: None)
  Receive Date: 20141230
  Receipt Date: 20141230
  Transmission Date: 20150529
  Serious: Yes (Hospitalization)
  Sender: FDA-Public Use
  Company Number: None

PATIENT
  Age: 8 Year
  Sex: Male
  Weight: 34.4 kg

DRUGS (4)
  1. METHOTREXATE [Suspect]
     Active Substance: METHOTREXATE
     Dates: end: 20141110
  2. VINCRISTINE SULFATE. [Suspect]
     Active Substance: VINCRISTINE SULFATE
     Dates: end: 20141103
  3. MERCAPTOPURINE. [Suspect]
     Active Substance: MERCAPTOPURINE
     Dates: end: 20141111
  4. DEXAMETHASONE. [Suspect]
     Active Substance: DEXAMETHASONE
     Dates: end: 20141107

REACTIONS (11)
  - Febrile neutropenia [None]
  - Dilatation ventricular [None]
  - Metabolic acidosis [None]
  - Circulatory collapse [None]
  - Bone marrow disorder [None]
  - Multi-organ failure [None]
  - Candida test positive [None]
  - Deep vein thrombosis [None]
  - Pneumocystis jirovecii pneumonia [None]
  - Hypotension [None]
  - Tricuspid valve incompetence [None]

NARRATIVE: CASE EVENT DATE: 20141111
